FAERS Safety Report 5598244-9 (Version None)
Quarter: 2008Q1

REPORT INFORMATION
  Report Type: 
  Country: None (occurrence: None)
  Receive Date: 20080117
  Receipt Date: 20080117
  Transmission Date: 20080703
  Serious: Yes (Hospitalization)
  Sender: FDA-Public Use
  Company Number: None

PATIENT
  Age: 62 Year
  Sex: Male
  Weight: 79 kg

DRUGS (1)
  1. XANAX [Suspect]
     Indication: PANIC ATTACK
     Dosage: 0.5MG TID PO
     Route: 048
     Dates: start: 19850101, end: 20080116

REACTIONS (1)
  - CONVULSION [None]
